FAERS Safety Report 7911228-8 (Version None)
Quarter: 2011Q4

REPORT INFORMATION
  Report Type: 
  Country: None (occurrence: None)
  Receive Date: 20111108
  Receipt Date: 20111025
  Transmission Date: 20120403
  Serious: Yes (Hospitalization, Other)
  Sender: FDA-Public Use
  Company Number: 2011SP037423

PATIENT
  Sex: Male

DRUGS (3)
  1. PEG-INTRON [Suspect]
     Indication: HEPATITIS C
     Dates: start: 20110101
  2. PROZAC [Concomitant]
  3. RIBAVIRIN [Suspect]
     Indication: HEPATITIS C
     Dates: start: 20110101

REACTIONS (16)
  - MEMORY IMPAIRMENT [None]
  - SOMNOLENCE [None]
  - DECREASED APPETITE [None]
  - HYPOTONIA [None]
  - RESTLESS LEGS SYNDROME [None]
  - ABDOMINAL PAIN UPPER [None]
  - HEADACHE [None]
  - NAUSEA [None]
  - AMMONIA INCREASED [None]
  - FATIGUE [None]
  - WEIGHT DECREASED [None]
  - HALLUCINATION, VISUAL [None]
  - HAEMOGLOBIN DECREASED [None]
  - SUICIDAL IDEATION [None]
  - DISORIENTATION [None]
  - AGITATION [None]
